FAERS Safety Report 13386150 (Version 1)
Quarter: 2017Q1

REPORT INFORMATION
  Report Type: Spontaneous
  Country: US (occurrence: US)
  Receive Date: 20170330
  Receipt Date: 20170330
  Transmission Date: 20170429
  Serious: No
  Sender: FDA-Public Use
  Company Number: US-BAUSCH-BL-2017-002613

PATIENT
  Age: 68 Year
  Sex: Male

DRUGS (1)
  1. JUBLIA [Suspect]
     Active Substance: EFINACONAZOLE
     Indication: ONYCHOMYCOSIS
     Dosage: ONCE DAILY ON FINGERNAIL
     Route: 061
     Dates: start: 20170115

REACTIONS (2)
  - Drug administered at inappropriate site [Unknown]
  - No adverse event [Unknown]
